FAERS Safety Report 6270845-4 (Version None)
Quarter: 2009Q3

REPORT INFORMATION
  Report Type: 
  Country: None (occurrence: None)
  Receive Date: 20090716
  Receipt Date: 20090715
  Transmission Date: 20100115
  Serious: Yes (Life-Threatening)
  Sender: FDA-Public Use
  Company Number: AU-B.I. PHARMACEUTICALS,INC./RIDGEFIELD-2009-AU-00339AU

PATIENT
  Sex: Male

DRUGS (1)
  1. MICARDIS [Suspect]
     Indication: ESSENTIAL HYPERTENSION
     Dosage: 40 MG
     Dates: end: 20090108

REACTIONS (2)
  - ANGIOEDEMA [None]
  - SPEECH DISORDER [None]
